FAERS Safety Report 9494897 (Version 1)
Quarter: 2013Q3

REPORT INFORMATION
  Report Type: Spontaneous
  Country: CO (occurrence: None)
  Receive Date: 20130828
  Receipt Date: 20130828
  Transmission Date: 20140515
  Serious: Yes (Hospitalization)
  Sender: FDA-Public Use
  Company Number: 2013-3459

PATIENT
  Age: 61 Year
  Sex: Female

DRUGS (1)
  1. SOMATULINE [Suspect]
     Indication: ACROMEGALY
     Dosage: (120 MG, 1 IN 30 D)
     Route: 058
     Dates: start: 20091102

REACTIONS (1)
  - Urinary tract infection [None]
